FAERS Safety Report 26140154 (Version 1)
Quarter: 2025Q4

REPORT INFORMATION
  Report Type: Spontaneous
  Country: US (occurrence: US)
  Receive Date: 20251210
  Receipt Date: 20251210
  Transmission Date: 20260118
  Serious: Yes (Other)
  Sender: MYLAN
  Company Number: US-MYLANLABS-2025M1105487

PATIENT
  Sex: Male

DRUGS (28)
  1. CELEBREX [Suspect]
     Active Substance: CELECOXIB
     Indication: Product used for unknown indication
     Dosage: UNK
  2. CELEBREX [Suspect]
     Active Substance: CELECOXIB
     Dosage: UNK
     Route: 065
  3. CELEBREX [Suspect]
     Active Substance: CELECOXIB
     Dosage: UNK
     Route: 065
  4. CELEBREX [Suspect]
     Active Substance: CELECOXIB
     Dosage: UNK
  5. MELOXICAM [Suspect]
     Active Substance: MELOXICAM
     Indication: Product used for unknown indication
     Dosage: UNK
  6. MELOXICAM [Suspect]
     Active Substance: MELOXICAM
     Dosage: UNK
     Route: 065
  7. MELOXICAM [Suspect]
     Active Substance: MELOXICAM
     Dosage: UNK
     Route: 065
  8. MELOXICAM [Suspect]
     Active Substance: MELOXICAM
     Dosage: UNK
  9. THIOLA EC [Concomitant]
     Active Substance: TIOPRONIN
     Indication: Cystinuria
     Dosage: 300 MILLIGRAM, BID (2QAM WITH 2QPM BUT HAS BEEN TAKING 2QAM WITH 3QPM)
     Dates: start: 20191017
  10. THIOLA EC [Concomitant]
     Active Substance: TIOPRONIN
     Dosage: 300 MILLIGRAM, BID (2QAM WITH 2QPM BUT HAS BEEN TAKING 2QAM WITH 3QPM)
     Route: 065
     Dates: start: 20191017
  11. THIOLA EC [Concomitant]
     Active Substance: TIOPRONIN
     Dosage: 300 MILLIGRAM, BID (2QAM WITH 2QPM BUT HAS BEEN TAKING 2QAM WITH 3QPM)
     Route: 065
     Dates: start: 20191017
  12. THIOLA EC [Concomitant]
     Active Substance: TIOPRONIN
     Dosage: 300 MILLIGRAM, BID (2QAM WITH 2QPM BUT HAS BEEN TAKING 2QAM WITH 3QPM)
     Dates: start: 20191017
  13. AMLODIPINE BESYLATE [Concomitant]
     Active Substance: AMLODIPINE BESYLATE
     Dosage: UNK
  14. AMLODIPINE BESYLATE [Concomitant]
     Active Substance: AMLODIPINE BESYLATE
     Dosage: UNK
     Route: 065
  15. AMLODIPINE BESYLATE [Concomitant]
     Active Substance: AMLODIPINE BESYLATE
     Dosage: UNK
     Route: 065
  16. AMLODIPINE BESYLATE [Concomitant]
     Active Substance: AMLODIPINE BESYLATE
     Dosage: UNK
  17. CLARITIN [Concomitant]
     Active Substance: LORATADINE
     Dosage: UNK
  18. CLARITIN [Concomitant]
     Active Substance: LORATADINE
     Dosage: UNK
     Route: 065
  19. CLARITIN [Concomitant]
     Active Substance: LORATADINE
     Dosage: UNK
     Route: 065
  20. CLARITIN [Concomitant]
     Active Substance: LORATADINE
     Dosage: UNK
  21. MAGNESIUM CITRATE [Concomitant]
     Active Substance: MAGNESIUM CITRATE
     Dosage: UNK
  22. MAGNESIUM CITRATE [Concomitant]
     Active Substance: MAGNESIUM CITRATE
     Dosage: UNK
     Route: 065
  23. MAGNESIUM CITRATE [Concomitant]
     Active Substance: MAGNESIUM CITRATE
     Dosage: UNK
     Route: 065
  24. MAGNESIUM CITRATE [Concomitant]
     Active Substance: MAGNESIUM CITRATE
     Dosage: UNK
  25. POTASSIUM CITRATE [Concomitant]
     Active Substance: POTASSIUM CITRATE
     Dosage: UNK (FORMULATION EXTENDED RELEASE)
  26. POTASSIUM CITRATE [Concomitant]
     Active Substance: POTASSIUM CITRATE
     Dosage: UNK (FORMULATION EXTENDED RELEASE)
     Route: 065
  27. POTASSIUM CITRATE [Concomitant]
     Active Substance: POTASSIUM CITRATE
     Dosage: UNK (FORMULATION EXTENDED RELEASE)
     Route: 065
  28. POTASSIUM CITRATE [Concomitant]
     Active Substance: POTASSIUM CITRATE
     Dosage: UNK (FORMULATION EXTENDED RELEASE)

REACTIONS (1)
  - Nephrolithiasis [Not Recovered/Not Resolved]
